FAERS Safety Report 16825366 (Version 1)
Quarter: 2019Q3

REPORT INFORMATION
  Report Type: Spontaneous
  Country: CN (occurrence: CN)
  Receive Date: 20190919
  Receipt Date: 20190919
  Transmission Date: 20191005
  Serious: Yes (Other)
  Sender: FDA-Public Use
  Company Number: CN-BAXTER-2019BAX018077

PATIENT
  Age: 60 Year
  Sex: Female
  Weight: 53 kg

DRUGS (18)
  1. 0.9% SODIUM CHLORIDE INJECTION [Suspect]
     Active Substance: SODIUM CHLORIDE
     Dosage: THIRD CHEMOTHERAPY, EPIRUBICIN HYDROCHLORIDE 156 MG+ NS 100 ML
     Route: 041
     Dates: start: 20190710, end: 20190710
  2. 0.9% SODIUM CHLORIDE INJECTION [Suspect]
     Active Substance: SODIUM CHLORIDE
     Dosage: DOSE RE-INTRODUCED, EPIRUBICIN HYDROCHLORIDE + NS
     Route: 041
  3. ENDOXAN [Suspect]
     Active Substance: CYCLOPHOSPHAMIDE
     Dosage: THIRD CHEMOTHERAPY, CYCLOPHOSPHAMIDE 780 MG + NS 40 ML
     Route: 042
     Dates: start: 20190710, end: 20190710
  4. 0.9% SODIUM CHLORIDE INJECTION [Suspect]
     Active Substance: SODIUM CHLORIDE
     Indication: MEDICATION DILUTION
     Dosage: FIRST AND SECOND CHEMOTHERAPY, CYCLOPHOSPHAMIDE + NS
     Route: 042
  5. 0.9% SODIUM CHLORIDE INJECTION [Suspect]
     Active Substance: SODIUM CHLORIDE
     Dosage: DOSE RE-INTRODUCED, FLUOROURACIL + NS
     Route: 041
  6. PHARMORUBICIN RD [Suspect]
     Active Substance: EPIRUBICIN
     Dosage: THIRD CHEMOTHERAPY, EPIRUBICIN HYDROCHLORIDE 156 MG+ NS 100 ML
     Route: 041
     Dates: start: 20190710, end: 20190710
  7. 0.9% SODIUM CHLORIDE INJECTION [Suspect]
     Active Substance: SODIUM CHLORIDE
     Dosage: FIRST AND SECOND CHEMOTHERAPY, FLUOROURACIL+ NS
     Route: 041
  8. 0.9% SODIUM CHLORIDE INJECTION [Suspect]
     Active Substance: SODIUM CHLORIDE
     Dosage: THIRD CHEMOTHERAPY, FLUOROURACIL 780 MG+ NS 500 ML
     Route: 041
     Dates: start: 20190710, end: 20190710
  9. PHARMORUBICIN RD [Suspect]
     Active Substance: EPIRUBICIN
     Dosage: DOSE RE-INTRODUCED, EPIRUBICIN HYDROCHLORIDE + NS
     Route: 041
  10. 0.9% SODIUM CHLORIDE INJECTION [Suspect]
     Active Substance: SODIUM CHLORIDE
     Dosage: DOSE RE-INTRODUCED, CYCLOPHOSPHAMIDE + NS
     Route: 042
  11. FLUOROURACIL. [Suspect]
     Active Substance: FLUOROURACIL
     Dosage: DOSE RE-INTRODUCED, FLUOROURACIL+ NS
     Route: 041
  12. FLUOROURACIL. [Suspect]
     Active Substance: FLUOROURACIL
     Dosage: THIRD CHEMOTHERAPY, FLUOROURACIL 780 MG+ NS 500 ML
     Route: 041
     Dates: start: 20190710, end: 20190710
  13. ENDOXAN [Suspect]
     Active Substance: CYCLOPHOSPHAMIDE
     Indication: BREAST CANCER FEMALE
     Dosage: FIRST AND SECOND CHEMOTHERAPY, CYCLOPHOSPHAMIDE + NS
     Route: 042
  14. 0.9% SODIUM CHLORIDE INJECTION [Suspect]
     Active Substance: SODIUM CHLORIDE
     Dosage: FIRST AND SECOND CHEMOTHERAPY, EPIRUBICIN HYDROCHLORIDE + NS
     Route: 041
  15. 0.9% SODIUM CHLORIDE INJECTION [Suspect]
     Active Substance: SODIUM CHLORIDE
     Dosage: THIRD CHEMOTHERAPY, CYCLOPHOSPHAMIDE 780 MG + NS 40 ML
     Route: 042
     Dates: start: 20190710, end: 20190710
  16. FLUOROURACIL. [Suspect]
     Active Substance: FLUOROURACIL
     Indication: BREAST CANCER FEMALE
     Dosage: FIRST AND SECOND CHEMOTHERAPY, FLUOROURACIL + NS
     Route: 041
  17. ENDOXAN [Suspect]
     Active Substance: CYCLOPHOSPHAMIDE
     Dosage: DOSE RE-INTRODUCED, CYCLOPHOSPHAMIDE + NS
     Route: 042
  18. PHARMORUBICIN RD [Suspect]
     Active Substance: EPIRUBICIN
     Indication: BREAST CANCER FEMALE
     Dosage: FIRST AND SECOND CHEMOTHERAPY, EPIRUBICIN HYDROCHLORIDE + NS
     Route: 041

REACTIONS (2)
  - Leukopenia [Recovered/Resolved]
  - Agranulocytosis [Recovered/Resolved]

NARRATIVE: CASE EVENT DATE: 20190717
